FAERS Safety Report 13574918 (Version 1)
Quarter: 2017Q2

REPORT INFORMATION
  Report Type: Spontaneous
  Country: US (occurrence: US)
  Receive Date: 20170523
  Receipt Date: 20170523
  Transmission Date: 20170830
  Serious: No
  Sender: FDA-Public Use
  Company Number: US-ELI_LILLY_AND_COMPANY-US201705007793

PATIENT
  Sex: Male

DRUGS (7)
  1. METFORMIN [Concomitant]
     Active Substance: METFORMIN HYDROCHLORIDE
     Indication: RENAL IMPAIRMENT
  2. LIPITOR [Concomitant]
     Active Substance: ATORVASTATIN CALCIUM
     Indication: RENAL IMPAIRMENT
  3. LEVEMIR [Concomitant]
     Active Substance: INSULIN DETEMIR
     Indication: TYPE 1 DIABETES MELLITUS
  4. HUMALOG [Suspect]
     Active Substance: INSULIN LISPRO
     Indication: LATENT AUTOIMMUNE DIABETES IN ADULTS
     Dosage: 5 IU, EACH MORNING
     Route: 058
  5. LOSARTAN. [Concomitant]
     Active Substance: LOSARTAN
     Indication: RENAL IMPAIRMENT
  6. HUMALOG [Suspect]
     Active Substance: INSULIN LISPRO
     Dosage: 5 IU, EACH EVENING
     Route: 058
  7. HUMALOG [Suspect]
     Active Substance: INSULIN LISPRO
     Dosage: 5 IU, DAILY
     Route: 058

REACTIONS (2)
  - Cataract [Unknown]
  - Glycosylated haemoglobin increased [Unknown]
